FAERS Safety Report 9159467 (Version 2)
Quarter: 2013Q2

REPORT INFORMATION
  Report Type: Spontaneous
  Country: GB (occurrence: GB)
  Receive Date: 20130313
  Receipt Date: 20130417
  Transmission Date: 20140414
  Serious: Yes (Hospitalization)
  Sender: FDA-Public Use
  Company Number: PHFR2013GB001613

PATIENT
  Age: 57 Year
  Sex: Male

DRUGS (10)
  1. CLOZARIL [Suspect]
     Indication: SCHIZOPHRENIA
     Dosage: UNK
     Route: 048
     Dates: start: 20010701
  2. CLOZARIL [Suspect]
     Dosage: 700 UKN DAILY
     Route: 048
     Dates: start: 2003
  3. CLOZARIL [Suspect]
     Dosage: UNK
     Route: 048
     Dates: end: 20130227
  4. CLOZARIL [Suspect]
     Dosage: 700 UNK DAILY
     Route: 048
  5. CITALOPRAM [Concomitant]
     Dosage: 40 MG,DAILY
     Route: 048
  6. DOMPERIDONE [Concomitant]
     Dosage: 20 MG, DAILY
     Route: 048
  7. BEZAFIBRATE [Concomitant]
     Dosage: 400 MG, DAILY
     Route: 048
  8. TEMAZEPAM [Concomitant]
     Dosage: 20 MG, DAILY
     Route: 048
  9. THIAMINE [Concomitant]
     Dosage: 150 MG, DAILY
     Route: 048
     Dates: start: 201303
  10. LAMOTRIGINE [Concomitant]
     Dosage: 200 MG, UNK

REACTIONS (4)
  - Fall [Unknown]
  - Cold sweat [Recovered/Resolved]
  - Confusional state [Recovered/Resolved]
  - Circulatory collapse [Recovered/Resolved]
